FAERS Safety Report 4846341-5 (Version None)
Quarter: 2005Q4

REPORT INFORMATION
  Report Type: 
  Country: None (occurrence: None)
  Receive Date: 20051125
  Receipt Date: 20051117
  Transmission Date: 20060501
  Serious: Yes (Death, Hospitalization, Other)
  Sender: FDA-Public Use
  Company Number: 2005139478

PATIENT
  Age: 35 Year
  Sex: Male

DRUGS (7)
  1. SERTRALINE HCL [Suspect]
     Indication: DYSTHYMIC DISORDER
     Dosage: 50 MG (100 MG, 1 IN 1 D), ORAL
     Route: 048
     Dates: end: 20050101
  2. SINOGAN (LEVOMEPROMAZINE) [Suspect]
     Indication: MENTAL RETARDATION SEVERITY UNSPECIFIED
     Dosage: 50 MG (100 MG, 1 IN 1 D), ORAL
     Route: 048
     Dates: end: 20050101
  3. AUGMENTIN '250' [Suspect]
     Indication: RESPIRATORY DISORDER
     Dosage: 3 GRAM/600 MG (3 IN 1 D), INTRAVENOUS
     Route: 042
     Dates: start: 20050702, end: 20050708
  4. CIPROFLOXACIN [Suspect]
     Indication: URINARY TRACT INFECTION
     Dosage: 1 GRAM (500 MG, 2 IN 1 D), ORAL
     Route: 048
     Dates: start: 20050707, end: 20050717
  5. CLONAZEPAM [Suspect]
     Indication: MENTAL RETARDATION SEVERITY UNSPECIFIED
     Dosage: 2 MG (2 MG, 1 IN 1 D), ORAL
     Route: 048
     Dates: end: 20050101
  6. RISPERDAL [Suspect]
     Indication: MENTAL RETARDATION SEVERITY UNSPECIFIED
     Dosage: 3 MG (3 MG, 1 IN 1 D), ORAL
     Route: 048
     Dates: end: 20050101
  7. LANSOPRAZOL (LANSOPRAZOLE) [Concomitant]

REACTIONS (6)
  - AGRANULOCYTOSIS [None]
  - BRONCHOSPASM [None]
  - DRUG INTERACTION [None]
  - PNEUMONIA ASPIRATION [None]
  - RESPIRATORY TRACT INFECTION [None]
  - TACHYPNOEA [None]
